FAERS Safety Report 8511008-9 (Version None)
Quarter: 2012Q3

REPORT INFORMATION
  Report Type: 
  Country: None (occurrence: None)
  Receive Date: 20120716
  Receipt Date: 20120706
  Transmission Date: 20120928
  Serious: Yes (Other)
  Sender: FDA-Public Use
  Company Number: US-BAYER-2012-055407

PATIENT
  Age: 39 Year
  Sex: Female

DRUGS (4)
  1. YAZ [Suspect]
  2. LOTREL [Concomitant]
     Indication: HYPERTENSION
     Dosage: 10/20 MG
     Route: 048
     Dates: start: 20050310
  3. DYAZIDE [Concomitant]
     Indication: HYPERTENSION
     Dosage: 37.5/25
     Route: 048
     Dates: start: 20050228
  4. YASMIN [Suspect]
     Indication: MENSTRUATION IRREGULAR
     Dosage: UNK
     Dates: start: 20030301, end: 20050713

REACTIONS (3)
  - PAIN [None]
  - DEEP VEIN THROMBOSIS [None]
  - OEDEMA PERIPHERAL [None]
